FAERS Safety Report 8534640-5 (Version None)
Quarter: 2012Q3

REPORT INFORMATION
  Report Type: 
  Country: None (occurrence: None)
  Receive Date: 20120724
  Receipt Date: 20120712
  Transmission Date: 20120928
  Serious: Yes (Hospitalization, Other)
  Sender: FDA-Public Use
  Company Number: US-009507513-1202USA00208

PATIENT

DRUGS (2)
  1. FOSAMAX [Suspect]
     Indication: OSTEOPOROSIS
     Dosage: 70 MG, QW
     Route: 048
     Dates: start: 20020201, end: 20080401
  2. ALENDRONATE SODIUM [Suspect]
     Indication: OSTEOPOROSIS
     Dosage: 70 MG, QW
     Dates: start: 20080726, end: 20100701

REACTIONS (7)
  - DIABETES MELLITUS [None]
  - HYPOTHYROIDISM [None]
  - HYPERTENSION [None]
  - THYROID DISORDER [None]
  - GASTROINTESTINAL DISORDER [None]
  - TOOTH DISORDER [None]
  - FEMUR FRACTURE [None]
